FAERS Safety Report 9024699 (Version 2)
Quarter: 2013Q1

REPORT INFORMATION
  Report Type: Spontaneous
  Country: US (occurrence: US)
  Receive Date: 20130121
  Receipt Date: 20130307
  Transmission Date: 20140127
  Serious: Yes (Hospitalization)
  Sender: FDA-Public Use
  Company Number: US-BIOGENIDEC-2013BI005146

PATIENT
  Age: 60 Year
  Sex: Female

DRUGS (1)
  1. TYSABRI [Suspect]
     Indication: MULTIPLE SCLEROSIS
     Route: 042
     Dates: start: 20080320

REACTIONS (4)
  - Hyperparathyroidism primary [Recovered/Resolved]
  - Parathyroid tumour benign [Recovered/Resolved]
  - Benign neoplasm of thyroid gland [Recovered/Resolved]
  - Upper respiratory tract infection [Not Recovered/Not Resolved]
